FAERS Safety Report 6267395-8 (Version None)
Quarter: 2009Q3

REPORT INFORMATION
  Report Type: 
  Country: None (occurrence: None)
  Receive Date: 20090710
  Receipt Date: 20090402
  Transmission Date: 20100115
  Serious: Yes (Other)
  Sender: FDA-Public Use
  Company Number: ADR1132009

PATIENT
  Age: 80 Year
  Sex: Male

DRUGS (9)
  1. METFORMIN ARROW R 1000 MG [Suspect]
     Dosage: 2000 MG
  2. CAPTOPRIL [Suspect]
     Indication: DIABETES MELLITUS
     Dosage: 50 MG ORAL
     Route: 048
     Dates: start: 20080701
  3. FUROSEMIDE ARROW [Concomitant]
  4. BISOPROLOL (CARDENSIEL) [Concomitant]
  5. TRINITRINE (NITRIDERM) [Concomitant]
  6. ALLOPURINOL REPAGLINIDE (NOVONORM) [Concomitant]
  7. DL-LYSINE ACETYLSALICYLATE (ASPEGIC) [Concomitant]
  8. DESLORATADINE (AERIOUS) [Concomitant]
  9. LOSARTAN (COZAR) [Concomitant]

REACTIONS (3)
  - LIP SWELLING [None]
  - PRODUCT SUBSTITUTION ISSUE [None]
  - RASH ERYTHEMATOUS [None]
